FAERS Safety Report 4397253-5 (Version None)
Quarter: 2004Q3

REPORT INFORMATION
  Report Type: 
  Country: None (occurrence: None)
  Receive Date: 20040709
  Receipt Date: 20040629
  Transmission Date: 20050211
  Serious: No
  Sender: FDA-Public Use
  Company Number: 04P-150-0259458-00

PATIENT
  Age: 41 Year
  Sex: Female

DRUGS (9)
  1. HUMIRA [Suspect]
     Indication: RHEUMATOID ARTHRITIS
     Dosage: 40 MG, SUBCUTANEOUS
     Route: 058
     Dates: start: 20030305
  2. SULFASALAZINE [Concomitant]
  3. ORUDIS RETARD [Concomitant]
  4. LEFLUNOMIDE [Concomitant]
  5. CITALOPRAM [Concomitant]
  6. LEVOTHYROXINE SODIUM [Concomitant]
  7. INSULIN [Concomitant]
  8. BUDESONIDE [Concomitant]
  9. SALMETEROL XINAFOATE [Concomitant]

REACTIONS (4)
  - HYPERSENSITIVITY [None]
  - INJECTION SITE SWELLING [None]
  - INJECTION SITE URTICARIA [None]
  - URTICARIA [None]
